FAERS Safety Report 10006526 (Version 3)
Quarter: 2014Q1

REPORT INFORMATION
  Report Type: Report from Study
  Country: US (occurrence: US)
  Receive Date: 20140313
  Receipt Date: 20140324
  Transmission Date: 20141002
  Serious: Yes (Other)
  Sender: FDA-Public Use
  Company Number: US-ACTELION-A-NJ2014-93916

PATIENT
  Age: 62 Year
  Sex: Male

DRUGS (2)
  1. TRACLEER [Suspect]
     Indication: PULMONARY ARTERIAL HYPERTENSION
     Dosage: UNK
     Route: 048
     Dates: end: 20140114
  2. ISOSORBIDE [Suspect]

REACTIONS (4)
  - Coronary artery occlusion [Unknown]
  - Malaise [Unknown]
  - Drug interaction [Unknown]
  - Drug ineffective [Recovered/Resolved]
